FAERS Safety Report 12212092 (Version 1)
Quarter: 2016Q1

REPORT INFORMATION
  Report Type: Spontaneous
  Country: MX (occurrence: MX)
  Receive Date: 20160325
  Receipt Date: 20160325
  Transmission Date: 20160526
  Serious: Yes (Other)
  Sender: FDA-Public Use
  Company Number: MX-PFIZER INC-2016152860

PATIENT
  Age: 36 Year
  Sex: Female
  Weight: 78 kg

DRUGS (6)
  1. LINEZOLID. [Suspect]
     Active Substance: LINEZOLID
     Indication: STAPHYLOCOCCUS TEST POSITIVE
     Dosage: 600 MG, 2X/DAY
     Route: 042
     Dates: start: 20150925, end: 20150929
  2. LINEZOLID. [Interacting]
     Active Substance: LINEZOLID
     Indication: PNEUMONIA STAPHYLOCOCCAL
  3. TPN [Concomitant]
     Active Substance: AMINO ACIDS\DEXTROSE\ELECTROLYTES NOS\SOYBEAN OIL
  4. MIDAZOLAM [Concomitant]
     Active Substance: MIDAZOLAM\MIDAZOLAM HYDROCHLORIDE
     Indication: ANALGESIC THERAPY
  5. METOCLOPRAMIDA [Interacting]
     Active Substance: METOCLOPRAMIDE HYDROCHLORIDE
     Dosage: 10 MG, UNK
     Route: 042
     Dates: start: 20150921, end: 20150927
  6. NALBUPHINE [Concomitant]
     Active Substance: NALBUPHINE
     Indication: ANALGESIC THERAPY

REACTIONS (9)
  - Serotonin syndrome [Recovering/Resolving]
  - Tachycardia [Recovered/Resolved]
  - Tremor [Recovered/Resolved]
  - Pyrexia [Recovered/Resolved]
  - Hypertension [Recovered/Resolved]
  - Mydriasis [Recovered/Resolved]
  - Hyperhidrosis [Recovered/Resolved]
  - Drug interaction [Unknown]
  - Clonus [Recovered/Resolved]

NARRATIVE: CASE EVENT DATE: 20150926
